FAERS Safety Report 7833732-3 (Version None)
Quarter: 2011Q4

REPORT INFORMATION
  Report Type: 
  Country: None (occurrence: None)
  Receive Date: 20111024
  Receipt Date: 20111018
  Transmission Date: 20120403
  Serious: Yes (Hospitalization)
  Sender: FDA-Public Use
  Company Number: US-PFIZER INC-2004102166

PATIENT
  Sex: Male

DRUGS (1)
  1. SOMATROPIN [Suspect]
     Indication: HYPOPITUITARISM
     Dosage: 0.4 MG, 1X/DAY
     Dates: start: 19990401, end: 20040310

REACTIONS (2)
  - NEOPLASM RECURRENCE [None]
  - BLADDER CANCER [None]
